FAERS Safety Report 11115991 (Version 1)
Quarter: 2015Q2

REPORT INFORMATION
  Report Type: Spontaneous
  Country: US (occurrence: None)
  Receive Date: 20150514
  Receipt Date: 20150514
  Transmission Date: 20150821
  Serious: Yes (Hospitalization)
  Sender: FDA-Public Use
  Company Number: None

PATIENT
  Age: 48 Year
  Sex: Male
  Weight: 41.73 kg

DRUGS (6)
  1. DOXORUBICIN HYDROCHLORIDE. [Suspect]
     Active Substance: DOXORUBICIN HYDROCHLORIDE
     Dates: end: 20140707
  2. ETOPOSIDE (VP-16) [Suspect]
     Active Substance: ETOPOSIDE
     Dates: end: 20140707
  3. RITUXIMAB (MOAB  C2B8 ANTI CD20, CHIMERIC) [Suspect]
     Active Substance: RITUXIMAB
     Dates: end: 20140703
  4. CYCLOPHOSPHAMIDE. [Suspect]
     Active Substance: CYCLOPHOSPHAMIDE
     Dates: end: 20140707
  5. VINCRISTINE SULFATE. [Suspect]
     Active Substance: VINCRISTINE SULFATE
     Dates: end: 20140707
  6. PREDNISONE. [Suspect]
     Active Substance: PREDNISONE
     Dates: end: 20140707

REACTIONS (27)
  - Culture urine positive [None]
  - Abdominal distension [None]
  - Ventricular extrasystoles [None]
  - Gastritis [None]
  - Clostridium difficile colitis [None]
  - Fall [None]
  - Oesophagitis [None]
  - Electrocardiogram QT prolonged [None]
  - Gastric polyps [None]
  - Subdural haematoma [None]
  - Weight decreased [None]
  - Asthenia [None]
  - Enterococcal infection [None]
  - Haematemesis [None]
  - Febrile neutropenia [None]
  - Electrolyte imbalance [None]
  - Blood pressure decreased [None]
  - Oesophageal ulcer [None]
  - Cytomegalovirus gastroenteritis [None]
  - Cachexia [None]
  - Small intestinal obstruction [None]
  - Pneumoperitoneum [None]
  - Decreased appetite [None]
  - Pelvic fracture [None]
  - Ulcer [None]
  - Subdural hygroma [None]
  - Sepsis [None]

NARRATIVE: CASE EVENT DATE: 20140723
